FAERS Safety Report 8791391 (Version 1)
Quarter: 2012Q4

REPORT INFORMATION
  Report Type: Spontaneous
  Country: US (occurrence: None)
  Receive Date: 20120912
  Receipt Date: 20120912
  Transmission Date: 20130627
  Serious: Yes (Other)
  Sender: FDA-Public Use
  Company Number: AUR-APL-2012-03918

PATIENT
  Age: 57 Year
  Sex: Male

DRUGS (3)
  1. GLIBENCLAMIDE [Suspect]
     Indication: DRUG USE FOR UNKNOWN INDICATION
  2. ACETAMINOPHEN [Suspect]
     Indication: DRUG USE FOR UNKNOWN INDICATION
  3. ACETYLSALICYLIC ACID [Suspect]
     Indication: DRUG USE FOR UNKNOWN INDICATION

REACTIONS (9)
  - Hypoglycaemia [None]
  - Disease recurrence [None]
  - Overdose [None]
  - Unresponsive to stimuli [None]
  - Liver injury [None]
  - Metabolic disorder [None]
  - Glycogen storage disorder [None]
  - Catabolic state [None]
  - Inhibitory drug interaction [None]
